FAERS Safety Report 25770623 (Version 1)
Quarter: 2025Q3

REPORT INFORMATION
  Report Type: Spontaneous
  Country: US (occurrence: US)
  Receive Date: 20250908
  Receipt Date: 20250908
  Transmission Date: 20251020
  Serious: No
  Sender: CHIESI
  Company Number: US-CHIESI-2024CHF07718

PATIENT
  Sex: Female
  Weight: 36 kg

DRUGS (4)
  1. FERRIPROX [Suspect]
     Active Substance: DEFERIPRONE
     Indication: Haemochromatosis
     Dosage: 1000 MILLIGRAM, TID
     Route: 048
     Dates: start: 20231017
  2. FERRIPROX [Suspect]
     Active Substance: DEFERIPRONE
     Indication: Red blood cell transfusion
  3. FERRIPROX [Suspect]
     Active Substance: DEFERIPRONE
     Indication: Thalassaemia beta
  4. OMEPRAZOLE [Concomitant]
     Active Substance: OMEPRAZOLE
     Indication: Product used for unknown indication

REACTIONS (1)
  - Fatigue [Not Recovered/Not Resolved]
